FAERS Safety Report 7212672-7 (Version None)
Quarter: 2011Q1

REPORT INFORMATION
  Report Type: 
  Country: None (occurrence: None)
  Receive Date: 20110106
  Receipt Date: 20101231
  Transmission Date: 20110831
  Serious: Yes (Life-Threatening)
  Sender: FDA-Public Use
  Company Number: GB-ABBOTT-10P-167-0694542-00

PATIENT
  Age: 68 Year
  Sex: Male
  Weight: 70 kg

DRUGS (2)
  1. HUMIRA [Suspect]
     Indication: CROHN'S DISEASE
     Route: 058
     Dates: start: 20100901, end: 20101114
  2. PREDNISOLONE [Concomitant]
     Indication: CROHN'S DISEASE
     Dosage: DOSAGE TEXT: 20-40 MG. DRUG CONTINUED.
     Route: 048
     Dates: start: 20040101

REACTIONS (3)
  - COUGH [None]
  - PYREXIA [None]
  - PNEUMOCYSTIS JIROVECI PNEUMONIA [None]
